FAERS Safety Report 13517122 (Version 1)
Quarter: 2017Q2

REPORT INFORMATION
  Report Type: Spontaneous
  Country: US (occurrence: US)
  Receive Date: 20170505
  Receipt Date: 20170505
  Transmission Date: 20170830
  Serious: Yes (Hospitalization)
  Sender: FDA-Public Use
  Company Number: None

PATIENT
  Age: 77 Year
  Sex: Male
  Weight: 89.9 kg

DRUGS (11)
  1. DOCUSATE [Concomitant]
     Active Substance: DOCUSATE
  2. XIFAXAN [Concomitant]
     Active Substance: RIFAXIMIN
  3. FLOMAX [Concomitant]
     Active Substance: TAMSULOSIN HYDROCHLORIDE
  4. HCTZ [Concomitant]
     Active Substance: HYDROCHLOROTHIAZIDE
  5. MYSOLINE [Concomitant]
     Active Substance: PRIMIDONE
  6. NORVASC [Concomitant]
     Active Substance: AMLODIPINE BESYLATE
  7. WARFARIN [Suspect]
     Active Substance: WARFARIN
     Indication: AORTIC VALVE REPLACEMENT
     Dosage: DOSE - FREQUENCY - 5 MG DAILY X 5.5 MG SAT/SUN?DATES OF USE - CHRONIC - ANTICOAG, MECH VALUE
     Route: 048
  8. EXELON [Concomitant]
     Active Substance: RIVASTIGMINE TARTRATE
  9. KEPPRA [Concomitant]
     Active Substance: LEVETIRACETAM
  10. DESYREL [Suspect]
     Active Substance: TRAZODONE HYDROCHLORIDE
  11. SINEQUAN [Concomitant]
     Active Substance: DOXEPIN HYDROCHLORIDE

REACTIONS (3)
  - Anticoagulation drug level above therapeutic [None]
  - Cholecystitis acute [None]
  - Small intestinal haemorrhage [None]

NARRATIVE: CASE EVENT DATE: 20170109
